FAERS Safety Report 4382998-3 (Version None)
Quarter: 2004Q2

REPORT INFORMATION
  Report Type: 
  Country: None (occurrence: None)
  Receive Date: 20040528
  Receipt Date: 20030717
  Transmission Date: 20050107
  Serious: Yes (Hospitalization)
  Sender: FDA-Public Use
  Company Number: TAP2003Q01699

PATIENT
  Age: 53 Year
  Sex: Female
  Weight: 72.5755 kg

DRUGS (3)
  1. LUPRON DEPOT-3 [Suspect]
     Indication: UTERINE LEIOMYOMA
     Dosage: 3.75 MG, 1 IN 1 M, INTRAMUSCULAR
     Route: 030
     Dates: start: 20030701
  2. IRON (IRON) [Concomitant]
  3. CENTRUM (CENTRUM) [Concomitant]

REACTIONS (6)
  - CONDITION AGGRAVATED [None]
  - EYE REDNESS [None]
  - HOT FLUSH [None]
  - MENOMETRORRHAGIA [None]
  - PELVIC PAIN [None]
  - VAGINAL DISCHARGE [None]
